FAERS Safety Report 21804331 (Version 1)
Quarter: 2023Q1

REPORT INFORMATION
  Report Type: Other
  Country: MX (occurrence: None)
  Receive Date: 20230102
  Receipt Date: 20230102
  Transmission Date: 20230418
  Serious: No
  Sender: FDA-Public Use
  Company Number: MX-ROCHE-3254950

PATIENT
  Age: 49 Year
  Sex: Male
  Weight: 88 kg

DRUGS (1)
  1. OCREVUS [Suspect]
     Active Substance: OCRELIZUMAB
     Indication: Multiple sclerosis
     Route: 042
     Dates: start: 20200512

REACTIONS (1)
  - COVID-19 [Not Recovered/Not Resolved]

NARRATIVE: CASE EVENT DATE: 20221216
